FAERS Safety Report 21103278 (Version 1)
Quarter: 2022Q3

REPORT INFORMATION
  Report Type: Report from Study
  Country: GB (occurrence: GB)
  Receive Date: 20220720
  Receipt Date: 20220720
  Transmission Date: 20221027
  Serious: Yes (Other)
  Sender: FDA-Public Use
  Company Number: GB-NOVARTISPH-NVSC2021GB200119

PATIENT
  Age: 55 Year
  Sex: Male

DRUGS (1)
  1. SIPONIMOD [Suspect]
     Active Substance: SIPONIMOD
     Indication: Secondary progressive multiple sclerosis
     Dosage: 2 MG, QD
     Route: 048
     Dates: start: 20210705

REACTIONS (8)
  - Seasonal allergy [Unknown]
  - Lacrimation increased [Unknown]
  - Eye pruritus [Unknown]
  - Multiple sclerosis [Unknown]
  - Mobility decreased [Unknown]
  - Paraesthesia [Unknown]
  - Muscle twitching [Unknown]
  - Limb discomfort [Unknown]

NARRATIVE: CASE EVENT DATE: 20220701
